FAERS Safety Report 4337705-7 (Version None)
Quarter: 2004Q2

REPORT INFORMATION
  Report Type: 
  Country: None (occurrence: None)
  Receive Date: 20040408
  Receipt Date: 20040330
  Transmission Date: 20050107
  Serious: Yes (Hospitalization, Other)
  Sender: FDA-Public Use
  Company Number: 2004206659GB

PATIENT
  Sex: Male
  Weight: 0.7 kg

DRUGS (3)
  1. DALACIN C (CLINDAMYCIN) SOLUTION, STERILE [Suspect]
     Indication: STAPHYLOCOCCAL SEPSIS
  2. FLUCLOXACILLIN [Concomitant]
  3. CUROSURF [Concomitant]

REACTIONS (3)
  - DYSPNOEA [None]
  - NEONATAL DISORDER [None]
  - OXYGEN SATURATION DECREASED [None]
